FAERS Safety Report 9932383 (Version 1)
Quarter: 2014Q1

REPORT INFORMATION
  Report Type: Report from Study
  Country: US (occurrence: US)
  Receive Date: 20140228
  Receipt Date: 20140228
  Transmission Date: 20141002
  Serious: No
  Sender: FDA-Public Use
  Company Number: US-ABBVIE-13P-163-1169280-00

PATIENT
  Age: 58 Year
  Sex: Male
  Weight: 106.69 kg

DRUGS (14)
  1. ANDROGEL [Suspect]
     Indication: TESTICULAR FAILURE
     Dosage: 2 PUMPS DAILY
     Dates: start: 201309, end: 20131028
  2. ANDROGEL [Suspect]
     Dosage: 2 PUMPS AM, 2 PUMPS PM
     Dates: start: 20131029
  3. GLUCOPHAGE [Concomitant]
     Indication: DIABETES MELLITUS
  4. LOPID [Concomitant]
     Indication: PRODUCT USED FOR UNKNOWN INDICATION
  5. GLUCOTROL [Concomitant]
     Indication: DIABETES MELLITUS
  6. VASOTEC [Concomitant]
     Indication: HYPERTENSION
  7. NORVASC [Concomitant]
     Indication: PRODUCT USED FOR UNKNOWN INDICATION
  8. LASIX [Concomitant]
     Indication: PRODUCT USED FOR UNKNOWN INDICATION
  9. ALDACTONE [Concomitant]
     Indication: PRODUCT USED FOR UNKNOWN INDICATION
  10. COREG [Concomitant]
     Indication: PRODUCT USED FOR UNKNOWN INDICATION
  11. PRAVACHOL [Concomitant]
     Indication: PRODUCT USED FOR UNKNOWN INDICATION
  12. IRON [Concomitant]
     Indication: IRON DEFICIENCY
  13. VITAMIN D [Concomitant]
     Indication: VITAMIN SUPPLEMENTATION
  14. ASPIRIN [Concomitant]
     Indication: CARDIAC DISORDER

REACTIONS (3)
  - Blood testosterone decreased [Unknown]
  - Fatigue [Not Recovered/Not Resolved]
  - Drug ineffective [Unknown]
